FAERS Safety Report 4668255-6 (Version None)
Quarter: 2005Q2

REPORT INFORMATION
  Report Type: 
  Country: None (occurrence: None)
  Receive Date: 20050523
  Receipt Date: 20050201
  Transmission Date: 20051028
  Serious: Yes (Other)
  Sender: FDA-Public Use
  Company Number: PHEH2005US01573

PATIENT
  Age: 55 Year
  Sex: Female

DRUGS (18)
  1. ZOLEDRONIC ACID [Suspect]
     Indication: HYPERCALCAEMIA OF MALIGNANCY
     Dates: start: 20010302, end: 20011102
  2. AREDIA [Suspect]
     Indication: HYPERCALCAEMIA OF MALIGNANCY
     Dates: start: 20010302, end: 20011102
  3. MULTIVIT [Concomitant]
     Dosage: 1 TAB EVERY DAY
  4. VIT C TAB [Concomitant]
     Dosage: 3 GM DAILY
  5. CALCIUM GLUCONATE [Concomitant]
     Dosage: 1.2 GM DAILY
  6. ULTRAM [Concomitant]
     Dosage: 1 TAB QID
  7. SUDAFED 12 HOUR [Concomitant]
     Dosage: UNK, PRN
  8. WARFARIN [Concomitant]
     Dosage: I MG DAILY
  9. COENZYME Q10 [Concomitant]
     Dosage: 120 MG DAILY
  10. CELEXA [Concomitant]
     Dosage: UNK, QD
  11. FLAXSEED OIL [Concomitant]
     Dosage: 1/4 CUP Q DAY
  12. VITA-E [Concomitant]
     Dosage: 400 UNITS BID
  13. MILK THISTLE [Concomitant]
  14. VIOXX [Concomitant]
     Dosage: 25 MG
  15. DONYQUAI [Concomitant]
  16. METHOTREXATE [Concomitant]
     Dosage: 2.5 MG, 3 TABS BID ONCE A WEEK
  17. XANAX [Concomitant]
     Indication: ANXIETY
     Dosage: UNK, PRN
  18. ZOLEDRONATE [Suspect]
     Dosage: UNK, UNK
     Dates: start: 20011130, end: 20040406

REACTIONS (4)
  - JAW DISORDER [None]
  - ORAL SURGERY [None]
  - OSTEONECROSIS [None]
  - TOOTH DISORDER [None]
